FAERS Safety Report 13149710 (Version 3)
Quarter: 2018Q1

REPORT INFORMATION
  Report Type: Report from Study
  Country: US (occurrence: US)
  Receive Date: 20170124
  Receipt Date: 20180108
  Transmission Date: 20180508
  Serious: No
  Sender: FDA-Public Use
  Company Number: US-AMGEN-USASL2016184192

PATIENT
  Age: 72 Year
  Sex: Female

DRUGS (7)
  1. CARVEDILOL. [Concomitant]
     Active Substance: CARVEDILOL
     Dosage: 3.125 MG, BID
  2. GABAPENTIN. [Concomitant]
     Active Substance: GABAPENTIN
     Dosage: 300 MG, BID
  3. CLARITIN [Concomitant]
     Active Substance: LORATADINE
     Dosage: UNK 24 HOURS (HELPS WITH DRAINAGE)
  4. REPATHA [Suspect]
     Active Substance: EVOLOCUMAB
     Indication: TYPE IIA HYPERLIPIDAEMIA
  5. REPATHA [Suspect]
     Active Substance: EVOLOCUMAB
     Indication: BLOOD CHOLESTEROL INCREASED
     Dosage: 140 MG, Q2WK
     Route: 065
     Dates: start: 201511
  6. AZELASTINE. [Concomitant]
     Active Substance: AZELASTINE HYDROCHLORIDE
  7. CITALOPRAM [Concomitant]
     Active Substance: CITALOPRAM HYDROBROMIDE
     Dosage: 40 MG, BID

REACTIONS (8)
  - Sinus congestion [Unknown]
  - Throat irritation [Unknown]
  - Sinus pain [Unknown]
  - Hypersomnia [Unknown]
  - Ear pain [Unknown]
  - Nasal congestion [Unknown]
  - Pollakiuria [Unknown]
  - Fatigue [Unknown]
